FAERS Safety Report 10979877 (Version 1)
Quarter: 2015Q2

REPORT INFORMATION
  Report Type: Spontaneous
  Country: US (occurrence: US)
  Receive Date: 20150402
  Receipt Date: 20150402
  Transmission Date: 20150821
  Serious: No
  Sender: FDA-Public Use
  Company Number: US-SA-2014SA151059

PATIENT
  Sex: Female

DRUGS (2)
  1. PHENYLEPHRINE HYDROCHLORIDE/PHENYLPROPANOLAMINE HYDROCHLORIDE/BROMPHENIRAMINE MALEATE [Concomitant]
     Route: 065
  2. ALLEGRA [Suspect]
     Active Substance: FEXOFENADINE HYDROCHLORIDE
     Indication: NASOPHARYNGITIS
     Route: 048
     Dates: start: 20141030

REACTIONS (3)
  - Drug ineffective [Unknown]
  - Influenza [Unknown]
  - Feeling abnormal [Unknown]
